FAERS Safety Report 5713838-5 (Version None)
Quarter: 2008Q2

REPORT INFORMATION
  Report Type: 
  Country: None (occurrence: None)
  Receive Date: 20080421
  Receipt Date: 20080402
  Transmission Date: 20081010
  Serious: Yes (Life-Threatening, Hospitalization)
  Sender: FDA-Public Use
  Company Number: GB-DEXPHARM-20080292

PATIENT
  Age: 69 Year
  Sex: Male

DRUGS (11)
  1. DICLOFENAC [Suspect]
     Indication: PROCEDURAL PAIN
     Dosage: 1/1 DAYS (100 MG MILLIGRAM(S)}
     Dates: start: 20071127, end: 20071203
  2. ATORVASTATIN CALCIUM [Suspect]
     Dosage: 1/1 DAYS {40 MG MILLIGRAM(S)}
     Dates: end: 20071217
  3. EZETIMIBE [Suspect]
     Dosage: 1/1 DAYS {10 MG MILLIGRAM(S)}
     Dates: end: 20071217
  4. FLOXACILLIN SODIUM [Suspect]
     Indication: POST PROCEDURAL INFECTION
     Dosage: 4/1 DAYS {1 G GRAM(S)}
     Dates: start: 20071127, end: 20071217
  5. SODIUM FUSIDATE (FUSIDIC ACID) [Suspect]
     Indication: POST PROCEDURAL INFECTION
     Dosage: 3/1 DAYS (750 MG MILLIGRAM(S)}
     Dates: start: 20071127, end: 20071217
  6. ASPIRIN [Concomitant]
  7. ATENOLOL [Concomitant]
  8. ESOMEPRAZOLE [Concomitant]
  9. FOLIC ACID [Concomitant]
  10. RAMIPRIL [Concomitant]
  11. TRAMADOL HCL [Concomitant]

REACTIONS (2)
  - RENAL FAILURE ACUTE [None]
  - RHABDOMYOLYSIS [None]
